FAERS Safety Report 16432424 (Version 1)
Quarter: 2019Q2

REPORT INFORMATION
  Report Type: Report from Study
  Country: US (occurrence: US)
  Receive Date: 20190614
  Receipt Date: 20190614
  Transmission Date: 20190711
  Serious: Yes (Hospitalization)
  Sender: FDA-Public Use
  Company Number: PHHO2019US006301

PATIENT
  Age: 21 Year
  Sex: Male

DRUGS (12)
  1. LEUCOVORIN. [Suspect]
     Active Substance: LEUCOVORIN
     Indication: LEUKAEMIA
     Dosage: 36 MG AT SPECIFIED TIME POINTS
     Route: 042
     Dates: start: 20190420
  2. CEFTRIAXONE. [Concomitant]
     Active Substance: CEFTRIAXONE
     Indication: UPPER RESPIRATORY TRACT INFECTION
     Dosage: 2000 MILLIGRAM ONCE
     Route: 042
     Dates: start: 20190531, end: 20190531
  3. PIPERACILLIN/TAZOBACTAM [Concomitant]
     Active Substance: PIPERACILLIN SODIUM\TAZOBACTAM SODIUM
     Indication: UPPER RESPIRATORY TRACT INFECTION
  4. INC424A [Suspect]
     Active Substance: RUXOLITINIB
     Indication: LEUKAEMIA
     Dosage: 50 MG/M2, BID
     Route: 048
     Dates: start: 20190418
  5. VINCRISTINE [Suspect]
     Active Substance: VINCRISTINE
     Indication: LEUKAEMIA
     Dosage: 2 MG AT SPECIFIED TIME POINTS
     Route: 042
     Dates: start: 20190418
  6. MERCAPTOPURINE. [Suspect]
     Active Substance: MERCAPTOPURINE
     Indication: LEUKAEMIA
     Dosage: UNK
     Route: 048
     Dates: start: 20190418, end: 20190603
  7. ACETAMINOPHEN. [Concomitant]
     Active Substance: ACETAMINOPHEN
     Indication: PYREXIA
     Dosage: 650 MILLIGRAM ONCE
     Route: 048
     Dates: start: 20190531, end: 20190531
  8. ONDANSETRON [Concomitant]
     Active Substance: ONDANSETRON
     Indication: NAUSEA
     Dosage: 4 MG, ONCE/SINGLE
     Route: 042
     Dates: start: 20190531, end: 20190531
  9. LORAZEPAM. [Concomitant]
     Active Substance: LORAZEPAM
     Indication: UPPER RESPIRATORY TRACT INFECTION
     Dosage: 1 MILLIGRAM ONCE
     Route: 042
     Dates: start: 20190531, end: 20190531
  10. PIPERACILLIN/TAZOBACTAM [Concomitant]
     Active Substance: PIPERACILLIN SODIUM\TAZOBACTAM SODIUM
     Indication: PYREXIA
     Dosage: 4000 MG, ONCE/SINGLE
     Route: 042
     Dates: start: 20190530, end: 20190531
  11. TRIMETHOPRIM SULFAMETHOXAZOLE [Concomitant]
     Active Substance: SULFAMETHOXAZOLE\TRIMETHOPRIM
     Indication: PROPHYLAXIS
     Dosage: 160 MILLIGRAM 2 TIMES PER DAY PER WEEK
     Route: 048
     Dates: start: 20190523, end: 20190529
  12. METHOTREXATE. [Suspect]
     Active Substance: METHOTREXATE
     Indication: LEUKAEMIA
     Dosage: 12450-12600 MG AT SPECIFIED POINTS
     Route: 042
     Dates: start: 20190418

REACTIONS (1)
  - Upper respiratory tract infection [Recovering/Resolving]

NARRATIVE: CASE EVENT DATE: 20190603
